FAERS Safety Report 6253590-0 (Version None)
Quarter: 2009Q3

REPORT INFORMATION
  Report Type: 
  Country: None (occurrence: None)
  Receive Date: 20090701
  Receipt Date: 20090623
  Transmission Date: 20100115
  Serious: Yes (Congenital Anomaly)
  Sender: FDA-Public Use
  Company Number: US-ABBOTT-08P-163-0444364-00

PATIENT
  Sex: Male

DRUGS (2)
  1. KALETRA [Suspect]
     Indication: DRUG EXPOSURE DURING PREGNANCY
     Route: 064
  2. TRIZIVIR [Suspect]
     Indication: DRUG EXPOSURE DURING PREGNANCY
     Route: 064

REACTIONS (10)
  - ALPHA 1 FOETOPROTEIN DECREASED [None]
  - ATRIOVENTRICULAR SEPTAL DEFECT [None]
  - CONGENITAL ANOMALY [None]
  - CONGENITAL GREAT VESSEL ANOMALY [None]
  - CONGENITAL NOSE MALFORMATION [None]
  - DOUBLE OUTLET RIGHT VENTRICLE [None]
  - DRUG EXPOSURE DURING PREGNANCY [None]
  - KIDNEY SMALL [None]
  - PREMATURE BABY [None]
  - VENTRICULAR SEPTAL DEFECT [None]
